FAERS Safety Report 6481206-7 (Version None)
Quarter: 2009Q4

REPORT INFORMATION
  Report Type: 
  Country: None (occurrence: None)
  Receive Date: 20091208
  Receipt Date: 20090305
  Transmission Date: 20100525
  Serious: No
  Sender: FDA-Public Use
  Company Number: US-AMGEN-KDL338192

PATIENT
  Sex: Female

DRUGS (3)
  1. ENBREL [Suspect]
     Indication: RHEUMATOID ARTHRITIS
     Dates: end: 20081101
  2. TYLENOL (CAPLET) [Concomitant]
     Route: 048
  3. VITAMIN TAB [Concomitant]
     Route: 048

REACTIONS (1)
  - RHEUMATOID ARTHRITIS [None]
